FAERS Safety Report 23073085 (Version 1)
Quarter: 2023Q4

REPORT INFORMATION
  Report Type: Report from Study
  Country: EU (occurrence: None)
  Receive Date: 20231017
  Receipt Date: 20231017
  Transmission Date: 20240109
  Serious: Yes (Other)
  Sender: FDA-Public Use
  Company Number: None

PATIENT
  Age: 7 Year

DRUGS (2)
  1. TEPADINA [Suspect]
     Active Substance: THIOTEPA
     Indication: Medulloblastoma
     Dosage: 180 MG/DIE
     Route: 042
     Dates: start: 20230926, end: 20230927
  2. TEPADINA [Suspect]
     Active Substance: THIOTEPA
     Indication: Medulloblastoma
     Dosage: 180 MG/DIE
     Route: 042
     Dates: start: 20230928, end: 20230928

REACTIONS (4)
  - Nausea [Recovered/Resolved]
  - Pancytopenia [Recovering/Resolving]
  - Vomiting [Recovered/Resolved]
  - Anaemia [Recovered/Resolved]

NARRATIVE: CASE EVENT DATE: 20231002
